FAERS Safety Report 7700063-1 (Version None)
Quarter: 2011Q3

REPORT INFORMATION
  Report Type: 
  Country: None (occurrence: None)
  Receive Date: 20110822
  Receipt Date: 20110810
  Transmission Date: 20111222
  Serious: Yes (Death, Life-Threatening, Hospitalization)
  Sender: FDA-Public Use
  Company Number: JP-AMGEN-JPNCT2011017267

PATIENT
  Age: 65 Year
  Sex: Male
  Weight: 47 kg

DRUGS (26)
  1. PANITUMUMAB [Suspect]
     Dosage: 6 MG/KG, Q2WK
     Route: 041
     Dates: start: 20100930, end: 20110303
  2. DECADRON [Concomitant]
     Dosage: UNK
     Route: 042
  3. FENTANYL [Concomitant]
     Route: 062
  4. CALCICOL [Concomitant]
     Dosage: UNK
     Route: 042
  5. MAGNESIUM SULFATE [Concomitant]
     Dosage: UNK
     Route: 042
  6. ALINAMIN-F [Concomitant]
     Route: 048
  7. FLUOROURACIL [Suspect]
     Route: 041
     Dates: start: 20100715, end: 20101027
  8. OXALIPLATIN [Concomitant]
     Route: 041
     Dates: start: 20101104, end: 20110217
  9. FLUOROURACIL [Suspect]
     Route: 041
     Dates: start: 20110303, end: 20110303
  10. RABEPRAZOLE SODIUM [Concomitant]
     Route: 048
  11. FLUOROURACIL [Suspect]
     Indication: COLORECTAL CANCER
     Route: 040
     Dates: start: 20100715, end: 20101027
  12. LEUCOVORIN CALCIUM [Concomitant]
     Route: 041
     Dates: start: 20101104, end: 20110217
  13. LEUCOVORIN CALCIUM [Concomitant]
     Route: 041
     Dates: start: 20110303, end: 20110303
  14. PANITUMUMAB [Suspect]
     Indication: COLORECTAL CANCER
     Dosage: 6 MG/KG, Q2WK
     Route: 041
     Dates: start: 20100715, end: 20100902
  15. FLUOROURACIL [Suspect]
     Route: 041
     Dates: start: 20101104, end: 20110217
  16. OXALIPLATIN [Concomitant]
     Indication: COLORECTAL CANCER
     Route: 041
     Dates: start: 20100715, end: 20101027
  17. CAMPTOSAR [Suspect]
     Indication: COLORECTAL CANCER
     Route: 041
     Dates: start: 20110303, end: 20110303
  18. LEUCOVORIN CALCIUM [Concomitant]
     Indication: COLORECTAL CANCER
     Route: 041
     Dates: start: 20100715, end: 20101027
  19. BESOFTEN [Concomitant]
     Dosage: UNK
     Route: 062
  20. OXYCONTIN [Concomitant]
     Route: 048
  21. PROCHLORPERAZINE [Concomitant]
     Route: 048
  22. MAGMITT [Concomitant]
     Route: 048
  23. FLUOROURACIL [Suspect]
     Route: 040
     Dates: start: 20101104, end: 20110217
  24. FLUOROURACIL [Suspect]
     Route: 040
     Dates: start: 20110303, end: 20110303
  25. KYTRIL [Concomitant]
     Dosage: UNK
     Route: 042
  26. OXINORM [Concomitant]
     Route: 048

REACTIONS (5)
  - COLORECTAL CANCER [None]
  - DIARRHOEA [None]
  - INTERSTITIAL LUNG DISEASE [None]
  - DERMATITIS [None]
  - WHITE BLOOD CELL COUNT DECREASED [None]
